FAERS Safety Report 16684478 (Version 2)
Quarter: 2019Q3

REPORT INFORMATION
  Report Type: Report from Study
  Country: DE (occurrence: DE)
  Receive Date: 20190808
  Receipt Date: 20190815
  Transmission Date: 20191004
  Serious: Yes (Hospitalization)
  Sender: FDA-Public Use
  Company Number: DE-AMGEN-DEUCT2019125780

PATIENT
  Age: 70 Year
  Sex: Female
  Weight: 61 kg

DRUGS (7)
  1. ACICLOVIR [Concomitant]
     Active Substance: ACYCLOVIR
     Indication: ANTIVIRAL PROPHYLAXIS
     Dosage: 800 MILLIGRAM
     Route: 048
     Dates: start: 20190723, end: 20190803
  2. LENALIDOMIDE [Suspect]
     Active Substance: LENALIDOMIDE
     Indication: PLASMA CELL MYELOMA
     Dosage: 25 MILLIGRAM, PER CHEMO REGIM
     Route: 048
     Dates: start: 20190725
  3. CARFILZOMIB [Suspect]
     Active Substance: CARFILZOMIB
     Indication: PLASMA CELL MYELOMA
     Dosage: 20 MILLIGRAM, PER CHEMO REGIM
     Route: 042
     Dates: start: 20190725
  4. DEXAMETHASONE. [Concomitant]
     Active Substance: DEXAMETHASONE
     Dosage: 40 UNK
     Route: 042
     Dates: start: 20190725
  5. CARFILZOMIB [Suspect]
     Active Substance: CARFILZOMIB
     Dosage: 36 MILLIGRAM/SQ. METER, PER CHEMO REGIM
     Route: 042
  6. ISATUXIMAB [Suspect]
     Active Substance: ISATUXIMAB
     Indication: PLASMA CELL MYELOMA
     Dosage: 610 MILLIGRAM, PER CHEMO REGIM
     Route: 042
     Dates: start: 20190725
  7. COTRIM FORTE [Concomitant]
     Active Substance: SULFAMETHOXAZOLE\TRIMETHOPRIM
     Indication: ANTIBIOTIC PROPHYLAXIS
     Dosage: 960 MILLIGRAM, 3 TIMES/WK
     Route: 048
     Dates: start: 20190724, end: 20190802

REACTIONS (1)
  - Infection [Not Recovered/Not Resolved]

NARRATIVE: CASE EVENT DATE: 20190803
